FAERS Safety Report 9825226 (Version 1)
Quarter: 2014Q1

REPORT INFORMATION
  Report Type: Report from Study
  Country: FR (occurrence: FR)
  Receive Date: 20140117
  Receipt Date: 20140117
  Transmission Date: 20141002
  Serious: Yes (Hospitalization)
  Sender: FDA-Public Use
  Company Number: FR-JNJFOC-20140106846

PATIENT
  Age: 82 Year
  Sex: Male
  Weight: 90 kg

DRUGS (4)
  1. INFLIXIMAB, RECOMBINANT [Suspect]
     Indication: RHEUMATOID ARTHRITIS
     Route: 042
     Dates: start: 20101207
  2. INFLIXIMAB, RECOMBINANT [Suspect]
     Indication: COLITIS ULCERATIVE
     Route: 042
     Dates: start: 20101207
  3. HUMIRA [Suspect]
     Indication: COLITIS ULCERATIVE
     Route: 065
     Dates: start: 20110217
  4. HUMIRA [Suspect]
     Indication: POLYARTHRITIS
     Route: 065
     Dates: start: 20110217

REACTIONS (2)
  - Pneumonia [Recovering/Resolving]
  - Immunosuppression [Unknown]
